FAERS Safety Report 4662808-7 (Version None)
Quarter: 2005Q2

REPORT INFORMATION
  Report Type: 
  Country: None (occurrence: None)
  Receive Date: 20050512
  Receipt Date: 20050422
  Transmission Date: 20051028
  Serious: Yes (Hospitalization)
  Sender: FDA-Public Use
  Company Number: USA040362931

PATIENT
  Age: 78 Year
  Sex: Female

DRUGS (26)
  1. FORTEO [Suspect]
     Indication: OSTEOPOROSIS
     Dosage: 20 UG DAY
     Dates: start: 20031001
  2. VICODIN [Concomitant]
  3. NEURONTIN [Concomitant]
  4. ASPIRIN [Concomitant]
  5. DETROL [Concomitant]
  6. TESSALON [Concomitant]
  7. LASIX [Concomitant]
  8. CALTRATE 600 PLUS VITAMIN D [Concomitant]
  9. CITRACAL WITH VITAMIN D [Concomitant]
  10. BETOPIC (BETAMETHASONE) [Concomitant]
  11. ESGIC-PLUS [Concomitant]
  12. MULTI-VITAMIN [Concomitant]
  13. LEXAPRO [Concomitant]
  14. FLUOXETINE HCL [Concomitant]
  15. VITAMIN E [Concomitant]
  16. ECHINACEA EXTRACT [Concomitant]
  17. STOL SOFTENER (DOCUSATE SODIUM) [Concomitant]
  18. VITAMIN E [Concomitant]
  19. ECHINACEA EXTRACT [Concomitant]
  20. STOOL SOFTENER (DOCUSATE SODIUM) [Concomitant]
  21. NEXIUM [Concomitant]
  22. PRILOSEC [Concomitant]
  23. TUSSI-12 [Concomitant]
  24. PROTONIX [Concomitant]
  25. AMITRIPTYLINE [Concomitant]
  26. CELEBREX [Concomitant]

REACTIONS (10)
  - BACK DISORDER [None]
  - BACK PAIN [None]
  - BREAST COSMETIC SURGERY [None]
  - BREAST SWELLING [None]
  - BRONCHITIS [None]
  - CONDITION AGGRAVATED [None]
  - GASTRITIS [None]
  - HYPERTROPHY BREAST [None]
  - INFLAMMATION [None]
  - PHARMACEUTICAL PRODUCT COMPLAINT [None]
